FAERS Safety Report 17648044 (Version 1)
Quarter: 2020Q2

REPORT INFORMATION
  Report Type: Spontaneous
  Country: US (occurrence: US)
  Receive Date: 20200408
  Receipt Date: 20200408
  Transmission Date: 20200713
  Serious: No
  Sender: FDA-Public Use
  Company Number: US-009507513-2004USA001899

PATIENT
  Age: 65 Year
  Sex: Male

DRUGS (4)
  1. PROVENTIL [Suspect]
     Active Substance: ALBUTEROL
     Indication: HYPERSENSITIVITY
     Dosage: 2 PUFFS 1 TO 4 TIMES A DAY AS NEEDED
     Dates: start: 2015
  2. CORTICOSTEROIDS (UNSPECIFIED) [Concomitant]
     Active Substance: UNSPECIFIED INGREDIENT
     Dosage: UNK
  3. PROVENTIL [Suspect]
     Active Substance: ALBUTEROL
     Indication: BRONCHITIS
  4. FLONASE [Concomitant]
     Active Substance: FLUTICASONE PROPIONATE
     Dosage: UNK

REACTIONS (5)
  - Product quality issue [Unknown]
  - Poor quality device used [Unknown]
  - Product use in unapproved indication [Unknown]
  - Product use issue [Unknown]
  - Product dose omission [Unknown]

NARRATIVE: CASE EVENT DATE: 2015
